FAERS Safety Report 5929274-2 (Version None)
Quarter: 2008Q4

REPORT INFORMATION
  Report Type: 
  Country: None (occurrence: None)
  Receive Date: 20081023
  Receipt Date: 20081023
  Transmission Date: 20090506
  Serious: Yes (Other)
  Sender: FDA-Public Use
  Company Number: None

PATIENT
  Sex: Male
  Weight: 84.2 kg

DRUGS (8)
  1. REVLIMID [Suspect]
     Indication: PROSTATE CANCER
     Dosage: 25 MG PO X 21 DAYS FOLLOWED BY 7 DAYS OFF
     Dates: start: 20080617, end: 20080820
  2. FLOMAX [Concomitant]
  3. LUPRON [Concomitant]
  4. LISINOPRIL [Concomitant]
  5. LIPITOR [Concomitant]
  6. HYDROCHLOROTHIAZIDE [Concomitant]
  7. NOVOLOG [Concomitant]
  8. ASPIRIN [Concomitant]

REACTIONS (4)
  - DRY SKIN [None]
  - PRURITUS [None]
  - RASH MACULO-PAPULAR [None]
  - URTICARIA [None]
